FAERS Safety Report 15973601 (Version 2)
Quarter: 2019Q1

REPORT INFORMATION
  Report Type: Report from Study
  Country: None (occurrence: CA)
  Receive Date: 20190216
  Receipt Date: 20190219
  Transmission Date: 20190418
  Serious: Yes (Other)
  Sender: FDA-Public Use
  Company Number: CA-ABBVIE-19K-028-2667348-00

PATIENT
  Sex: Female

DRUGS (2)
  1. HUMIRA [Suspect]
     Active Substance: ADALIMUMAB
     Route: 058
     Dates: start: 201811
  2. HUMIRA [Suspect]
     Active Substance: ADALIMUMAB
     Indication: CROHN^S DISEASE
     Route: 058
     Dates: start: 20180302, end: 201811

REACTIONS (4)
  - Colitis [Not Recovered/Not Resolved]
  - Drug ineffective [Unknown]
  - Gastrointestinal obstruction [Recovering/Resolving]
  - Ulcer [Recovered/Resolved]

NARRATIVE: CASE EVENT DATE: 2018
